FAERS Safety Report 6020785-0 (Version None)
Quarter: 2008Q4

REPORT INFORMATION
  Report Type: 
  Country: None (occurrence: None)
  Receive Date: 20081229
  Receipt Date: 20081217
  Transmission Date: 20090506
  Serious: Yes (Other)
  Sender: FDA-Public Use
  Company Number: US-JNJFOC-20081204949

PATIENT
  Sex: Male
  Weight: 82.56 kg

DRUGS (6)
  1. DURAGESIC-100 [Suspect]
     Indication: PAIN IN EXTREMITY
     Route: 062
  2. DURAGESIC-100 [Suspect]
     Indication: BACK PAIN
     Route: 062
  3. ROXICODONE [Concomitant]
     Indication: PAIN
     Route: 048
  4. CYMBALTA [Concomitant]
     Indication: PAIN IN EXTREMITY
     Route: 048
  5. MICARDIS [Concomitant]
     Indication: BLOOD PRESSURE
     Route: 048
  6. ASPIRIN [Concomitant]
     Indication: CARDIAC DISORDER
     Route: 048

REACTIONS (5)
  - ACNE [None]
  - APPLICATION SITE ABSCESS [None]
  - PRURITUS GENERALISED [None]
  - SUBCUTANEOUS ABSCESS [None]
  - THERMAL BURN [None]
